FAERS Safety Report 6266344-6 (Version None)
Quarter: 2009Q3

REPORT INFORMATION
  Report Type: 
  Country: None (occurrence: None)
  Receive Date: 20090713
  Receipt Date: 20090702
  Transmission Date: 20100115
  Serious: Yes (Hospitalization, Other)
  Sender: FDA-Public Use
  Company Number: US-ELI_LILLY_AND_COMPANY-US200907001553

PATIENT
  Sex: Female
  Weight: 78.005 kg

DRUGS (6)
  1. BYETTA [Suspect]
     Indication: TYPE 2 DIABETES MELLITUS
     Dates: start: 20070101
  2. METFORMIN HCL [Concomitant]
  3. PLAQUENIL [Concomitant]
  4. LYRICA [Concomitant]
     Dosage: UNK, DAILY (1/D)
  5. CYMBALTA [Concomitant]
     Dosage: UNK, DAILY (1/D)
  6. ELAVIL [Concomitant]
     Indication: PAIN

REACTIONS (9)
  - DEBRIDEMENT [None]
  - NEOPLASM MALIGNANT [None]
  - PAIN IN EXTREMITY [None]
  - RHEUMATOID ARTHRITIS [None]
  - UMBILICAL HERNIA [None]
  - WEIGHT INCREASED [None]
  - WOUND DEHISCENCE [None]
  - WOUND INFECTION [None]
  - WOUND SECRETION [None]
